FAERS Safety Report 24186230 (Version 1)
Quarter: 2024Q3

REPORT INFORMATION
  Report Type: Spontaneous
  Country: CN (occurrence: CN)
  Receive Date: 20240808
  Receipt Date: 20240808
  Transmission Date: 20241016
  Serious: Yes (Hospitalization)
  Sender: BEIGENE
  Company Number: CN-BEIGENE-BGN-2024-011944

PATIENT

DRUGS (4)
  1. TISLELIZUMAB [Suspect]
     Active Substance: TISLELIZUMAB
     Indication: Hepatic cancer
     Dosage: 200 MILLIGRAM
     Route: 041
     Dates: start: 20240411
  2. TISLELIZUMAB [Suspect]
     Active Substance: TISLELIZUMAB
     Dosage: 200 MILLIGRAM
     Route: 041
     Dates: start: 20240527
  3. LENVATINIB MESYLATE [Suspect]
     Active Substance: LENVATINIB MESYLATE
     Indication: Hepatic cancer
     Dosage: 8 MILLIGRAM, QD
     Route: 048
     Dates: start: 20240406
  4. TENOFOVIR AMIBUFENAMIDE [Concomitant]
     Active Substance: TENOFOVIR AMIBUFENAMIDE
     Indication: Hepatitis B
     Dosage: 25 MILLIGRAM, QD
     Route: 048
     Dates: start: 20240408

REACTIONS (13)
  - Electrolyte imbalance [Recovering/Resolving]
  - Hypocalcaemia [Recovering/Resolving]
  - Hyponatraemia [Recovering/Resolving]
  - Hypomagnesaemia [Recovering/Resolving]
  - Hypophosphataemia [Recovering/Resolving]
  - Asthenia [Unknown]
  - Abdominal distension [Unknown]
  - Chest discomfort [Unknown]
  - Dyspnoea [Unknown]
  - Decreased appetite [Unknown]
  - Listless [Unknown]
  - Pleural effusion [Unknown]
  - Lung hypoinflation [Unknown]

NARRATIVE: CASE EVENT DATE: 20240525
